FAERS Safety Report 6219795-X (Version None)
Quarter: 2009Q2

REPORT INFORMATION
  Report Type: 
  Country: None (occurrence: None)
  Receive Date: 20090609
  Receipt Date: 20080806
  Transmission Date: 20091009
  Serious: Yes (Other)
  Sender: FDA-Public Use
  Company Number: B0577823A

PATIENT
  Age: 47 Year
  Sex: Female

DRUGS (4)
  1. CLENIL MODULITE [Suspect]
     Indication: ASTHMA PROPHYLAXIS
     Dosage: 200MCG TWICE PER DAY
     Route: 055
     Dates: start: 20080804, end: 20080804
  2. AMOXICILLIN [Concomitant]
     Indication: INFECTION
     Dosage: 250MG THREE TIMES PER DAY
     Route: 065
     Dates: start: 20080730
  3. NORETHINDRONE ACETATE AND ETHINYL ESTRADIOL [Concomitant]
     Indication: HORMONE REPLACEMENT THERAPY
     Route: 065
  4. ALBUTEROL [Concomitant]
     Indication: ASTHMA
     Dosage: 200MCG AS REQUIRED
     Route: 065

REACTIONS (2)
  - ORAL DISCOMFORT [None]
  - THROAT IRRITATION [None]
